FAERS Safety Report 25234453 (Version 1)
Quarter: 2025Q2

REPORT INFORMATION
  Report Type: Spontaneous
  Country: DE (occurrence: DE)
  Receive Date: 20250424
  Receipt Date: 20250424
  Transmission Date: 20250717
  Serious: Yes (Other)
  Sender: CHEPLAPHARM
  Company Number: DE-CHEPLA-2025005037

PATIENT
  Age: 38 Year
  Sex: Female
  Weight: 80 kg

DRUGS (10)
  1. QUETIAPINE [Suspect]
     Active Substance: QUETIAPINE
     Indication: Borderline personality disorder
     Dosage: ENTIRE PREGNANCY?DAILY DOSE: 25 MILLIGRAM
     Route: 048
     Dates: start: 202306, end: 202404
  2. BUPROPION [Suspect]
     Active Substance: BUPROPION
     Indication: Borderline personality disorder
     Dosage: DAILY DOSE: 150 MILLIGRAM
     Route: 048
     Dates: start: 202306, end: 202404
  3. LITHIUM [Suspect]
     Active Substance: LITHIUM
     Indication: Borderline personality disorder
     Dosage: DOSAGE INCREASED DURING PREGNANCY, AT LEAST UNTIL GW 4 ONLY 225 MG/D
     Route: 048
     Dates: start: 202306, end: 202404
  4. LITHIUM [Suspect]
     Active Substance: LITHIUM
     Indication: Borderline personality disorder
     Dosage: DOSAGE INCREASED DURING PREGNANCY, AT LEAST UNTIL GW 4 ONLY 225 MG/D?DAILY DOSE: 225 MILLIGRAM
     Route: 048
  5. MIRTAZAPINE [Suspect]
     Active Substance: MIRTAZAPINE
     Indication: Sleep disorder
     Dosage: DAILY DOSE: 15 MILLIGRAM
     Route: 048
     Dates: start: 202306, end: 202404
  6. SERTRALINE [Suspect]
     Active Substance: SERTRALINE HYDROCHLORIDE
     Indication: Borderline personality disorder
     Dosage: DAILY DOSE: 150 MILLIGRAM
     Route: 048
     Dates: start: 202306, end: 202404
  7. Fols?ure [Concomitant]
     Indication: Prophylaxis of neural tube defect
     Dosage: UNKNOWN WHETHER FOLIC ACID WAS CONTINUED DURING THE ENTIRE PREGNANCY
     Route: 048
     Dates: start: 202306, end: 202307
  8. LEVOTHYROXINE [Concomitant]
     Active Substance: LEVOTHYROXINE
     Indication: Hypothyroidism
     Dosage: 150-175 MICROGRAM/DAY?DAILY DOSE: 175 MILLIGRAM
     Route: 048
     Dates: start: 202306, end: 202404
  9. HERBALS\MITRAGYNINE [Concomitant]
     Active Substance: HERBALS\MITRAGYNINE
     Indication: Pain
  10. HERBALS\MITRAGYNINE [Concomitant]
     Active Substance: HERBALS\MITRAGYNINE
     Indication: Plantar fasciitis

REACTIONS (2)
  - Gestational diabetes [Recovered/Resolved]
  - Maternal exposure during pregnancy [Unknown]
